FAERS Safety Report 6834325-7 (Version None)
Quarter: 2010Q3

REPORT INFORMATION
  Report Type: 
  Country: None (occurrence: None)
  Receive Date: 20100712
  Receipt Date: 20090423
  Transmission Date: 20110219
  Serious: No
  Sender: FDA-Public Use
  Company Number: US-PFIZER INC-2007027236

PATIENT
  Sex: Female
  Weight: 56.327 kg

DRUGS (9)
  1. CHANTIX [Suspect]
     Indication: SMOKING CESSATION THERAPY
     Dosage: 0.5 MG, 2X/DAY
     Route: 048
     Dates: start: 20070320
  2. ZITHROMAX [Suspect]
     Dosage: UNK
  3. PREDNISONE [Suspect]
     Dosage: UNK
  4. LIPITOR [Concomitant]
     Indication: LIPIDS INCREASED
  5. LEXAPRO [Concomitant]
     Indication: DEPRESSION
     Dosage: 10 MG/DAY
  6. ALTACE [Concomitant]
     Indication: HYPERTENSION
     Dosage: 10 MG/DAY
  7. XANAX [Concomitant]
     Indication: NERVOUSNESS
     Dosage: 0.25 MG, AS NEEDED
  8. ZOCOR [Concomitant]
     Dosage: 20 MG / DAY
  9. PRILOSEC [Concomitant]
     Dosage: 20 MG/DAY

REACTIONS (8)
  - DIARRHOEA [None]
  - DYSPEPSIA [None]
  - INSOMNIA [None]
  - MALAISE [None]
  - NAUSEA [None]
  - SINUSITIS [None]
  - VOMITING [None]
  - WEIGHT DECREASED [None]
